FAERS Safety Report 14232039 (Version 1)
Quarter: 2017Q4

REPORT INFORMATION
  Report Type: Spontaneous
  Country: FR (occurrence: FR)
  Receive Date: 20171128
  Receipt Date: 20171128
  Transmission Date: 20180321
  Serious: Yes (Death, Other)
  Sender: FDA-Public Use
  Company Number: FR-PFIZER INC-2017510739

PATIENT
  Age: 98 Year
  Sex: Female

DRUGS (7)
  1. LOVENOX [Suspect]
     Active Substance: ENOXAPARIN SODIUM
     Indication: THROMBOSIS PROPHYLAXIS
     Dosage: 4000 IU, UNK
     Route: 058
     Dates: start: 201710
  2. BISOCE [Suspect]
     Active Substance: BISOPROLOL
     Dosage: UNK
     Route: 048
     Dates: start: 2017
  3. CORDARONE [Suspect]
     Active Substance: AMIODARONE HYDROCHLORIDE
     Indication: CARDIAC FAILURE
     Dosage: UNK
     Route: 048
     Dates: start: 201706
  4. OXYNORMORO [Suspect]
     Active Substance: OXYCODONE HYDROCHLORIDE
     Indication: PAIN
     Dosage: AS NEEDED
     Route: 048
     Dates: start: 2017
  5. MACROGOL [Suspect]
     Active Substance: POLYETHYLENE GLYCOLS
     Dosage: AS NEEDED
     Route: 048
     Dates: start: 201710
  6. HYDROCORTANCYL /00016204/ [Suspect]
     Active Substance: PREDNISOLONE ACETATE
     Dosage: UNK
     Route: 014
     Dates: start: 201710
  7. DOLIPRANE [Suspect]
     Active Substance: ACETAMINOPHEN
     Indication: PAIN
     Dosage: AS NEEDED
     Route: 048
     Dates: start: 201710

REACTIONS (3)
  - Epistaxis [Unknown]
  - Death [Fatal]
  - Mouth haemorrhage [Unknown]

NARRATIVE: CASE EVENT DATE: 20171102
